FAERS Safety Report 6981324-0 (Version None)
Quarter: 2010Q3

REPORT INFORMATION
  Report Type: 
  Country: None (occurrence: None)
  Receive Date: 20100909
  Receipt Date: 20100823
  Transmission Date: 20110219
  Serious: No
  Sender: FDA-Public Use
  Company Number: APP201000671

PATIENT
  Age: 45 Year
  Sex: Female

DRUGS (2)
  1. SENSORCAINE [Suspect]
     Dosage: 20 ML, ONCE
     Dates: start: 20100819, end: 20100819
  2. POLOCAINE [Suspect]
     Dosage: 20 ML, ONCE
     Dates: start: 20100819, end: 20100819

REACTIONS (2)
  - CONVULSION [None]
  - INCORRECT ROUTE OF DRUG ADMINISTRATION [None]
